FAERS Safety Report 15637846 (Version 1)
Quarter: 2018Q4

REPORT INFORMATION
  Report Type: Spontaneous
  Country: US (occurrence: US)
  Receive Date: 20181120
  Receipt Date: 20181120
  Transmission Date: 20190205
  Serious: No
  Sender: FDA-Public Use
  Company Number: US-JNJFOC-20180407716

PATIENT
  Sex: Female

DRUGS (21)
  1. ACETYLSALICYLIC ACID [Concomitant]
     Active Substance: ASPIRIN
  2. YUVAFEM [Concomitant]
     Active Substance: ESTRADIOL HEMIHYDRATE
  3. FLUOXETINE [Concomitant]
     Active Substance: FLUOXETINE HYDROCHLORIDE
  4. VITAMIN B COMPLEX [Concomitant]
     Active Substance: CYANOCOBALAMIN\DEXPANTHENOL\NIACINAMIDE\PYRIDOXINE HYDROCHLORIDE\RIBOFLAVIN 5^-PHOSPHATE SODIUM\THIAMINE HYDROCHLORIDE\VITAMIN B COMPLEX
  5. LORATADINE. [Concomitant]
     Active Substance: LORATADINE
  6. LOVASTATIN. [Concomitant]
     Active Substance: LOVASTATIN
  7. MULTIVITAMINS [Concomitant]
     Active Substance: VITAMINS
  8. FISH OIL [Concomitant]
     Active Substance: FISH OIL
  9. GLUCOSAMINE [Concomitant]
     Active Substance: GLUCOSAMINE
  10. CALCIUM W/COLECALCIFEROL [Concomitant]
     Active Substance: CALCIUM\CHOLECALCIFEROL
  11. NIACIN. [Concomitant]
     Active Substance: NIACIN
  12. MAGNESIUM [Concomitant]
     Active Substance: MAGNESIUM
  13. B COMPLEX WITH VITAMIN C [Concomitant]
  14. OCUVITE [Concomitant]
     Active Substance: VITAMINS
  15. NIFEDIPINE. [Concomitant]
     Active Substance: NIFEDIPINE
  16. BIOTIN [Concomitant]
     Active Substance: BIOTIN
  17. IMBRUVICA [Suspect]
     Active Substance: IBRUTINIB
     Indication: B-CELL LYMPHOMA
     Route: 048
     Dates: start: 20170928
  18. MELATONIN [Concomitant]
     Active Substance: MELATONIN
  19. ACETAMINOPHEN. [Concomitant]
     Active Substance: ACETAMINOPHEN
  20. CALCIUM [Concomitant]
     Active Substance: CALCIUM
  21. MVI [Concomitant]
     Active Substance: VITAMINS

REACTIONS (3)
  - Hypersensitivity [Not Recovered/Not Resolved]
  - Nasopharyngitis [Not Recovered/Not Resolved]
  - Hair texture abnormal [Not Recovered/Not Resolved]

NARRATIVE: CASE EVENT DATE: 2017
